FAERS Safety Report 6077465-5 (Version None)
Quarter: 2009Q1

REPORT INFORMATION
  Report Type: 
  Country: None (occurrence: None)
  Receive Date: 20090213
  Receipt Date: 20081117
  Transmission Date: 20090719
  Serious: No
  Sender: FDA-Public Use
  Company Number: A0757487A

PATIENT
  Sex: Male

DRUGS (1)
  1. TREXIMET [Suspect]
     Indication: HEADACHE
     Route: 065
     Dates: start: 20081115

REACTIONS (2)
  - DYSPNOEA [None]
  - FEELING ABNORMAL [None]
